FAERS Safety Report 10519757 (Version 2)
Quarter: 2014Q4

REPORT INFORMATION
  Report Type: Spontaneous
  Country: US (occurrence: US)
  Receive Date: 20141015
  Receipt Date: 20141120
  Transmission Date: 20150528
  Serious: Yes (Other)
  Sender: FDA-Public Use
  Company Number: US-PFIZER INC-2014279164

PATIENT
  Age: 55 Year
  Sex: Female
  Weight: 61.22 kg

DRUGS (8)
  1. LYRICA [Suspect]
     Active Substance: PREGABALIN
     Indication: FIBROMYALGIA
     Dosage: 75 MG, (25 MG CAPSULES ONE IN THE MORNING, TWO  25MG CAPSULES IN THE EVENING)
     Dates: start: 20140918
  2. LYRICA [Suspect]
     Active Substance: PREGABALIN
     Indication: PAIN
  3. LYRICA [Suspect]
     Active Substance: PREGABALIN
     Indication: RHEUMATOID ARTHRITIS
  4. PERCOCET [Concomitant]
     Active Substance: ACETAMINOPHEN\OXYCODONE HYDROCHLORIDE
     Dosage: UNK
  5. FENTANYL. [Concomitant]
     Active Substance: FENTANYL
     Dosage: UNK
     Route: 061
  6. CELEBREX [Concomitant]
     Active Substance: CELECOXIB
     Dosage: 25 MG, UNK (25 MG IN MORNING AND 50 MG IN PM
  7. LAMICTAL [Concomitant]
     Active Substance: LAMOTRIGINE
     Indication: DEPRESSION
     Dosage: 200 MG, 1X/DAY (IN THE MORNING)
     Route: 048
  8. RITALIN [Concomitant]
     Active Substance: METHYLPHENIDATE HYDROCHLORIDE
     Indication: ATTENTION DEFICIT/HYPERACTIVITY DISORDER
     Dosage: 20 MG, (6AM AND BETWEEN 10-11AM I TAKE 20 MG AND AROUND 3:30PM, NO LATER THAN 4PM)

REACTIONS (5)
  - Depression [Recovered/Resolved]
  - Pre-existing condition improved [Unknown]
  - Suicidal ideation [Recovered/Resolved]
  - Weight decreased [Unknown]
  - Therapeutic response unexpected [Unknown]

NARRATIVE: CASE EVENT DATE: 20140920
